FAERS Safety Report 4967378-1 (Version None)
Quarter: 2006Q2

REPORT INFORMATION
  Report Type: 
  Country: None (occurrence: None)
  Receive Date: 20060404
  Receipt Date: 20060324
  Transmission Date: 20061013
  Serious: Yes (Life-Threatening, Hospitalization)
  Sender: FDA-Public Use
  Company Number: 2006-02-1198

PATIENT
  Age: 57 Year
  Sex: Male

DRUGS (7)
  1. INTRON A [Suspect]
     Indication: METASTATIC RENAL CELL CARCINOMA
     Dosage: 10 MU SUBCUTANEOUS
     Route: 058
     Dates: start: 20060123
  2. DIHYDROCODEINE [Concomitant]
  3. RAMIPRIL [Concomitant]
  4. DICLOFENAC SODIUM [Concomitant]
  5. CLOPIDOGREL [Concomitant]
  6. METFORMIN [Concomitant]
  7. SIMVASTATIN [Concomitant]

REACTIONS (1)
  - RENAL IMPAIRMENT [None]
